FAERS Safety Report 14833123 (Version 1)
Quarter: 2018Q2

REPORT INFORMATION
  Report Type: Spontaneous
  Country: US (occurrence: US)
  Receive Date: 20180412
  Receipt Date: 20180412
  Transmission Date: 20180711
  Serious: Yes (Disabling, Other)
  Sender: FDA-Public Use
  Company Number: None

PATIENT
  Age: 28 Year
  Sex: Female
  Weight: 71.21 kg

DRUGS (1)
  1. NEXPLANON [Suspect]
     Active Substance: ETONOGESTREL

REACTIONS (6)
  - Nausea [None]
  - Memory impairment [None]
  - Vision blurred [None]
  - Idiopathic intracranial hypertension [None]
  - Anxiety [None]
  - Arthralgia [None]

NARRATIVE: CASE EVENT DATE: 20170811
